FAERS Safety Report 16308161 (Version 1)
Quarter: 2019Q2

REPORT INFORMATION
  Report Type: Spontaneous
  Country: DE (occurrence: DE)
  Receive Date: 20190514
  Receipt Date: 20190514
  Transmission Date: 20190711
  Serious: Yes (Other)
  Sender: FDA-Public Use
  Company Number: DE-TEVA-2019-DE-1047910

PATIENT
  Age: 77 Year
  Sex: Female
  Weight: 55 kg

DRUGS (1)
  1. RAMIPRIL ABZ 2.5 MG TABLETTEN [Suspect]
     Active Substance: RAMIPRIL
     Dosage: 6 TABLETS, 4 DAYS 1.25 MG/DAILY, 4 DAYS 2.5 MG/DAILY
     Dates: start: 20190416, end: 20190426

REACTIONS (2)
  - Swollen tongue [Recovered/Resolved]
  - Angioedema [Recovered/Resolved]

NARRATIVE: CASE EVENT DATE: 20190426
